FAERS Safety Report 22245438 (Version 1)
Quarter: 2023Q2

REPORT INFORMATION
  Report Type: Spontaneous
  Country: US (occurrence: None)
  Receive Date: 20230423
  Receipt Date: 20230423
  Transmission Date: 20230722
  Serious: Yes (Disabling)
  Sender: FDA-Public Use
  Company Number: None

PATIENT
  Sex: Male
  Weight: 84.6 kg

DRUGS (2)
  1. FINASTERIDE [Suspect]
     Active Substance: FINASTERIDE
     Indication: Alopecia
  2. ROSUVASTATIN [Concomitant]
     Active Substance: ROSUVASTATIN

REACTIONS (33)
  - Myopathy [None]
  - Plantar fasciitis [None]
  - Peyronie^s disease [None]
  - Painful erection [None]
  - Painful ejaculation [None]
  - Semen volume decreased [None]
  - Azoospermia [None]
  - Loss of libido [None]
  - Disturbance in attention [None]
  - Aphasia [None]
  - Amnesia [None]
  - Anxiety [None]
  - Depression [None]
  - Suicidal ideation [None]
  - Oestradiol increased [None]
  - Blood prolactin increased [None]
  - Tinnitus [None]
  - Angiokeratoma [None]
  - Gynaecomastia [None]
  - Connective tissue disorder [None]
  - Ligament rupture [None]
  - Body height decreased [None]
  - Vision blurred [None]
  - Diplopia [None]
  - Weight increased [None]
  - Blood pressure increased [None]
  - Peripheral swelling [None]
  - Joint swelling [None]
  - Kyphosis [None]
  - Varicose vein [None]
  - Hepatic steatosis [None]
  - Hyalosis asteroid [None]
  - Pancreatitis acute [None]
